FAERS Safety Report 20014149 (Version 3)
Quarter: 2022Q1

REPORT INFORMATION
  Report Type: Report from Study
  Country: US (occurrence: US)
  Receive Date: 20211029
  Receipt Date: 20220111
  Transmission Date: 20220423
  Serious: Yes (Hospitalization, Other)
  Sender: FDA-Public Use
  Company Number: US-NOVARTISTESTPH-NVSC2021US247246

PATIENT
  Age: 54 Year
  Sex: Female

DRUGS (1)
  1. ENTRESTO [Suspect]
     Active Substance: SACUBITRIL\VALSARTAN
     Indication: Cardiac failure
     Dosage: 1 DOSAGE FORM, BID 49/51 MG)
     Route: 048
     Dates: start: 20210930

REACTIONS (5)
  - Cardiac failure [Unknown]
  - Dyspnoea [Not Recovered/Not Resolved]
  - Sarcoidosis [Unknown]
  - Weight decreased [Recovering/Resolving]
  - Waist circumference decreased [Recovering/Resolving]

NARRATIVE: CASE EVENT DATE: 20211027
